FAERS Safety Report 5226211-3 (Version None)
Quarter: 2007Q1

REPORT INFORMATION
  Report Type: 
  Country: None (occurrence: None)
  Receive Date: 20070201
  Receipt Date: 20070124
  Transmission Date: 20070707
  Serious: Yes (Hospitalization, Other)
  Sender: FDA-Public Use
  Company Number: PL-BRISTOL-MYERS SQUIBB COMPANY-13636261

PATIENT
  Age: 77 Year
  Sex: Female
  Weight: 69 kg

DRUGS (4)
  1. IRBESARTAN [Suspect]
     Indication: HYPERTENSION
     Dates: start: 20031218
  2. PLACEBO [Suspect]
     Indication: HYPERTENSION
     Dates: start: 20031218
  3. ACENOCOUMAROL [Suspect]
     Indication: PROPHYLAXIS
     Dates: start: 20031220, end: 20051012
  4. ANTICOAGULANT [Suspect]

REACTIONS (1)
  - HAEMARTHROSIS [None]
